FAERS Safety Report 16124859 (Version 1)
Quarter: 2019Q1

REPORT INFORMATION
  Report Type: Spontaneous
  Country: US (occurrence: US)
  Receive Date: 20190327
  Receipt Date: 20190327
  Transmission Date: 20190418
  Serious: No
  Sender: FDA-Public Use
  Company Number: US-ASTRAZENECA-2019SE34661

PATIENT
  Age: 65 Year
  Sex: Male

DRUGS (3)
  1. PREDNISONE. [Concomitant]
     Active Substance: PREDNISONE
     Route: 065
  2. FASENRA [Suspect]
     Active Substance: BENRALIZUMAB
     Indication: ASTHMA
     Dosage: ONCE EVERY 8 WEEKS
     Route: 058
  3. FASENRA [Suspect]
     Active Substance: BENRALIZUMAB
     Indication: ASTHMA
     Dosage: 30MG, EVERY 4 WEEKS FOR THE FIRST 3 DOSE
     Route: 058

REACTIONS (4)
  - Pruritus [Unknown]
  - Joint swelling [Unknown]
  - Ocular hyperaemia [Unknown]
  - Dyspnoea [Recovered/Resolved]
